FAERS Safety Report 4353408-7 (Version None)
Quarter: 2004Q2

REPORT INFORMATION
  Report Type: 
  Country: None (occurrence: None)
  Receive Date: 20040504
  Receipt Date: 20040420
  Transmission Date: 20050107
  Serious: Yes (Death)
  Sender: FDA-Public Use
  Company Number: 2004S1001161

PATIENT
  Age: 45 Year
  Sex: Male

DRUGS (2)
  1. CLOZAPINE [Suspect]
     Dosage: 50 MG Q AM AND 50 MG Q PM, ORAL
     Route: 048
     Dates: start: 20040401
  2. CLOZAPINE [Suspect]
     Dosage: 600 MG Q PM, ORAL
     Route: 048
     Dates: start: 20040401

REACTIONS (1)
  - DEATH [None]
